FAERS Safety Report 7613383-6 (Version None)
Quarter: 2011Q3

REPORT INFORMATION
  Report Type: 
  Country: None (occurrence: None)
  Receive Date: 20110708
  Receipt Date: 20110621
  Transmission Date: 20111222
  Serious: Yes (Death, Hospitalization, Other)
  Sender: FDA-Public Use
  Company Number: JPI-P-014754

PATIENT
  Age: 79 Year
  Sex: Female

DRUGS (2)
  1. XYREM [Suspect]
     Indication: CATAPLEXY
     Dosage: 5 GM (2.5 GM, 2 IN 1 D), ORAL (UNKNOWN), ORAL 5 GM (2.5 GM, 2 IN 1 D), ORAL
     Route: 048
     Dates: start: 20071019, end: 20110517
  2. XYREM [Suspect]
     Indication: CATAPLEXY
     Dosage: 5 GM (2.5 GM, 2 IN 1 D), ORAL (UNKNOWN), ORAL 5 GM (2.5 GM, 2 IN 1 D), ORAL
     Route: 048
     Dates: start: 20030826

REACTIONS (3)
  - SHOULDER OPERATION [None]
  - PNEUMONIA [None]
  - INFECTION [None]
